FAERS Safety Report 20960250 (Version 1)
Quarter: 2022Q2

REPORT INFORMATION
  Report Type: Spontaneous
  Country: US (occurrence: US)
  Receive Date: 20220615
  Receipt Date: 20220615
  Transmission Date: 20220721
  Serious: No
  Sender: FDA-Public Use
  Company Number: US-GSKCCFUS-Case-01404289_AE-80866

PATIENT
  Age: 97 Year
  Sex: Male

DRUGS (1)
  1. TRELEGY ELLIPTA [Suspect]
     Active Substance: FLUTICASONE FUROATE\UMECLIDINIUM BROMIDE\VILANTEROL TRIFENATATE
     Indication: Product used for unknown indication
     Dosage: UNK
     Dates: start: 202206

REACTIONS (4)
  - Sinus pain [Unknown]
  - Rhinalgia [Unknown]
  - Epistaxis [Unknown]
  - Hospice care [Unknown]

NARRATIVE: CASE EVENT DATE: 20220601
